FAERS Safety Report 7600730-4 (Version None)
Quarter: 2011Q3

REPORT INFORMATION
  Report Type: 
  Country: None (occurrence: None)
  Receive Date: 20110706
  Receipt Date: 20110706
  Transmission Date: 20111222
  Serious: Yes (Life-Threatening)
  Sender: FDA-Public Use
  Company Number: None

PATIENT
  Sex: Male
  Weight: 102.0593 kg

DRUGS (7)
  1. METFORMIN HCL [Concomitant]
  2. CARDIZEM CD [Concomitant]
  3. LOTENSIN/HCTZ [Concomitant]
  4. VICTOZA [Concomitant]
  5. VYTORIN [Concomitant]
  6. ACTOS [Suspect]
     Indication: DIABETES MELLITUS
     Dosage: 30 MG DAILY PO
     Route: 048
     Dates: start: 20030301
  7. AMARYL [Concomitant]

REACTIONS (3)
  - HAEMATURIA [None]
  - BLADDER CANCER [None]
  - BLADDER TRANSITIONAL CELL CARCINOMA [None]
